FAERS Safety Report 24693938 (Version 1)
Quarter: 2024Q4

REPORT INFORMATION
  Report Type: Spontaneous
  Country: US (occurrence: US)
  Receive Date: 20241204
  Receipt Date: 20241204
  Transmission Date: 20250114
  Serious: Yes (Other)
  Sender: PACIRA
  Company Number: US-ORG100016242-2023000358

PATIENT
  Age: 71 Year
  Sex: Female
  Weight: 91 kg

DRUGS (8)
  1. ZILRETTA [Suspect]
     Active Substance: TRIAMCINOLONE ACETONIDE
     Indication: Osteoarthritis
     Dosage: INJECTION TO LEFT KNEE
     Route: 014
     Dates: start: 20231213, end: 20231213
  2. ZILRETTA [Suspect]
     Active Substance: TRIAMCINOLONE ACETONIDE
     Indication: Osteoarthritis
     Dosage: DOSAGE NOT PROVIDED
     Route: 014
     Dates: start: 20230428, end: 20230428
  3. ZILRETTA [Suspect]
     Active Substance: TRIAMCINOLONE ACETONIDE
     Indication: Osteoarthritis
     Dosage: DOSAGE NOT PROVIDED
     Route: 014
     Dates: start: 20220901, end: 20220901
  4. MACROBID [Concomitant]
     Active Substance: NITROFURANTOIN\NITROFURANTOIN MONOHYDRATE
     Indication: Cystitis
     Dosage: DOSAGE NOT PROVIDED
     Dates: start: 20230801
  5. CEFTIN [Concomitant]
     Active Substance: CEFUROXIME AXETIL
     Indication: Cystitis
     Dosage: DOSAGE NOT PROVIDED
     Dates: start: 20230810
  6. CEPHALEXIN [Concomitant]
     Active Substance: CEPHALEXIN
     Indication: Cystitis
     Dosage: DOSAGE NOT PROVIDED
     Dates: start: 20231002
  7. CEPHALEXIN [Concomitant]
     Active Substance: CEPHALEXIN
     Indication: Cystitis
     Dosage: DOSAGE NOT PROVIDED
     Dates: start: 20231108
  8. NAROPIN [Concomitant]
     Active Substance: ROPIVACAINE HYDROCHLORIDE
     Indication: Product used for unknown indication
     Dosage: DOSAGE NOT PROVIDED
     Route: 065

REACTIONS (2)
  - Cataract [Unknown]
  - Cystitis [Unknown]

NARRATIVE: CASE EVENT DATE: 20230801
